FAERS Safety Report 21393227 (Version 5)
Quarter: 2023Q2

REPORT INFORMATION
  Report Type: Spontaneous
  Country: ES (occurrence: ES)
  Receive Date: 20220929
  Receipt Date: 20230411
  Transmission Date: 20230722
  Serious: Yes (Death, Hospitalization, Other)
  Sender: FDA-Public Use
  Company Number: ES-ASTELLAS-2022US033531

PATIENT
  Age: 70 Year
  Sex: Male

DRUGS (9)
  1. PREDNISOLONE [Suspect]
     Active Substance: PREDNISOLONE
     Indication: Mantle cell lymphoma stage IV
     Dosage: UNK UNK, UNKNOWN FREQ.
     Route: 065
  2. PREDNISOLONE [Suspect]
     Active Substance: PREDNISOLONE
     Indication: Mantle cell lymphoma stage IV
     Dosage: UNK UNK, CYCLIC (1ST LINE CHEMOTHERAPY, R-CHOP REGIMEN, 6 CYCLES)
     Route: 065
  3. CYTARABINE [Suspect]
     Active Substance: CYTARABINE
     Indication: Malignant neoplasm progression
     Dosage: UNK UNK, CYCLIC (RESCUE TREATMENT WITH POLYCHEMOTHERAPY, R-BAC REGIMEN)
     Route: 065
  4. VINCRISTINE [Suspect]
     Active Substance: VINCRISTINE
     Indication: Mantle cell lymphoma stage IV
     Dosage: UNK UNK, CYCLIC (1ST LINE CHEMOTHERAPY, R-CHOP REGIMEN, 6 CYCLES)
     Route: 065
  5. DOXORUBICIN [Suspect]
     Active Substance: DOXORUBICIN
     Indication: Mantle cell lymphoma stage IV
     Dosage: UNK UNK, CYCLIC (1ST LINE CHEMOTHERAPY, R-CHOP REGIMEN, 6 CYCLES)
     Route: 065
  6. BENDAMUSTINE HYDROCHLORIDE [Suspect]
     Active Substance: BENDAMUSTINE HYDROCHLORIDE
     Indication: Malignant neoplasm progression
     Dosage: UNK UNK, CYCLIC (RESCUE TREATMENT WITH POLYCHEMOTHERAPY, R-BAC REGIMEN)
     Route: 042
  7. CYCLOPHOSPHAMIDE [Suspect]
     Active Substance: CYCLOPHOSPHAMIDE
     Indication: Mantle cell lymphoma stage IV
     Dosage: UNK UNK, CYCLIC (1ST LINE CHEMOTHERAPY, R-CHOP REGIMEN, 6 CYCLES)
     Route: 065
  8. RITUXIMAB [Suspect]
     Active Substance: RITUXIMAB
     Indication: Malignant neoplasm progression
     Dosage: UNK, CYCLIC (RESCUE TREATMENT WITH POLYCHEMOTHERAPY, R-BAC REGIMEN)
     Route: 065
     Dates: start: 2022
  9. RITUXIMAB [Suspect]
     Active Substance: RITUXIMAB
     Dosage: UNK UNK, CYCLIC (1ST LINE CHEMOTHERAPY, R-CHOP REGIMEN, 6 CYCLES)
     Route: 065

REACTIONS (12)
  - Pneumonia [Fatal]
  - Hydronephrosis [Unknown]
  - Neuroendocrine carcinoma of the skin [Fatal]
  - Cardiac failure [Unknown]
  - Pneumonia pseudomonal [Recovered/Resolved]
  - Urethral obstruction [Unknown]
  - Pathogen resistance [Recovered/Resolved]
  - Malignant neoplasm progression [Fatal]
  - Scrotal oedema [Not Recovered/Not Resolved]
  - Aplasia [Unknown]
  - Nodule [Unknown]
  - Back pain [Unknown]
